FAERS Safety Report 7960312-1 (Version None)
Quarter: 2011Q4

REPORT INFORMATION
  Report Type: 
  Country: None (occurrence: None)
  Receive Date: 20111206
  Receipt Date: 20111202
  Transmission Date: 20120403
  Serious: Yes (Life-Threatening)
  Sender: FDA-Public Use
  Company Number: PHHY2011IT104484

PATIENT
  Sex: Female

DRUGS (3)
  1. SERTRALINE HYDROCHLORIDE [Suspect]
     Indication: DEMENTIA
     Dosage: 50 MG, DAILY
     Dates: start: 20101101
  2. EXELON [Suspect]
     Indication: DEMENTIA
     Dosage: 4.6 MG DAILY
     Route: 062
     Dates: start: 20111023
  3. AMIODARONE HCL [Concomitant]

REACTIONS (2)
  - TORSADE DE POINTES [None]
  - SYNCOPE [None]
